FAERS Safety Report 6838332-X (Version None)
Quarter: 2010Q3

REPORT INFORMATION
  Report Type: 
  Country: None (occurrence: None)
  Receive Date: 20100713
  Receipt Date: 20070609
  Transmission Date: 20110219
  Serious: No
  Sender: FDA-Public Use
  Company Number: US-PFIZER INC-2007047834

PATIENT
  Sex: Male
  Weight: 89.09 kg

DRUGS (8)
  1. CHANTIX [Suspect]
     Indication: SMOKING CESSATION THERAPY
     Dates: start: 20070607
  2. DILANTIN [Concomitant]
  3. LIPITOR [Concomitant]
  4. PAXIL [Concomitant]
  5. CYCLOBENZAPRINE [Concomitant]
  6. MEGESTROL ACETATE [Concomitant]
  7. ACETYLSALICYLIC ACID [Concomitant]
  8. ALL OTHER THERAPEUTIC PRODUCTS [Concomitant]

REACTIONS (1)
  - DIZZINESS [None]
